FAERS Safety Report 22137145 (Version 1)
Quarter: 2023Q1

REPORT INFORMATION
  Report Type: Spontaneous
  Country: GB (occurrence: GB)
  Receive Date: 20230324
  Receipt Date: 20230324
  Transmission Date: 20230418
  Serious: Yes (Death, Hospitalization, Other)
  Sender: FDA-Public Use
  Company Number: GB-MALLINCKRODT-MNK202300441

PATIENT
  Age: 2 Year
  Sex: Female
  Weight: 13 kg

DRUGS (3)
  1. UVADEX [Suspect]
     Active Substance: METHOXSALEN
     Indication: Acute graft versus host disease
     Dosage: NO. OF ECP TREATMENTS: 13
     Route: 050
     Dates: start: 20220929, end: 20221107
  2. TINZAPARIN [Concomitant]
     Active Substance: TINZAPARIN
     Dosage: DAILY
  3. ANTICOAGULANT CITRATE DEXTROSE SOLUTION (ACD) NOS [Concomitant]
     Active Substance: CITRIC ACID MONOHYDRATE\DEXTROSE\SODIUM CITRATE
     Dosage: (A/C RATIO 14:1)

REACTIONS (4)
  - Death [Fatal]
  - Pulmonary embolism [Not Recovered/Not Resolved]
  - General physical health deterioration [Unknown]
  - Product use in unapproved indication [Unknown]

NARRATIVE: CASE EVENT DATE: 20220929
